FAERS Safety Report 24266838 (Version 1)
Quarter: 2024Q3

REPORT INFORMATION
  Report Type: Spontaneous
  Country: ES (occurrence: ES)
  Receive Date: 20240830
  Receipt Date: 20240830
  Transmission Date: 20241017
  Serious: Yes (Other)
  Sender: INTERCEPT PHARMACEUTICALS
  Company Number: None

PATIENT
  Age: 55 Year
  Sex: Male

DRUGS (3)
  1. OCALIVA [Suspect]
     Active Substance: OBETICHOLIC ACID
     Dosage: 5 MG, QD
     Route: 048
     Dates: start: 20240318, end: 20240509
  2. URSODEOXYCHOL ACID [Concomitant]
     Dosage: UNK
  3. BENZAFIBRATO [Concomitant]
     Dosage: UNK

REACTIONS (10)
  - Diabetes mellitus [Unknown]
  - Ketosis-prone diabetes mellitus [Recovering/Resolving]
  - Nausea [Unknown]
  - Balance disorder [Unknown]
  - Change of bowel habit [Unknown]
  - Vomiting [Unknown]
  - Weight decreased [Recovering/Resolving]
  - Asthenia [Unknown]
  - Dizziness [Unknown]
  - Therapy cessation [Unknown]

NARRATIVE: CASE EVENT DATE: 20240101
